FAERS Safety Report 15543606 (Version 3)
Quarter: 2019Q1

REPORT INFORMATION
  Report Type: Spontaneous
  Country: JP (occurrence: JP)
  Receive Date: 20181023
  Receipt Date: 20190319
  Transmission Date: 20190417
  Serious: Yes (Death, Other)
  Sender: FDA-Public Use
  Company Number: JP-ALLERGAN-1850203US

PATIENT
  Sex: Female

DRUGS (9)
  1. BOTOX [Suspect]
     Active Substance: ONABOTULINUMTOXINA
     Indication: MUSCLE RIGIDITY
  2. MUCOSTA [Concomitant]
     Active Substance: REBAMIPIDE
     Indication: GASTRIC MUCOSAL LESION
     Dosage: 100 MG, TID
     Route: 065
     Dates: start: 20070926, end: 20170622
  3. BI SIFROL [Concomitant]
     Active Substance: PRAMIPEXOLE
     Indication: PARKINSONISM
     Dosage: 1 MG, TID
     Route: 065
     Dates: start: 20070926, end: 20170622
  4. BOTOX [Suspect]
     Active Substance: ONABOTULINUMTOXINA
     Indication: MUSCLE SPASMS
     Dosage: 100 UNITS, SINGLE
     Route: 030
     Dates: start: 20170619, end: 20170619
  5. BONALON [Concomitant]
     Active Substance: ALENDRONATE SODIUM
     Indication: OSTEOPOROSIS
     Dosage: 35 MG, Q WEEK
     Dates: start: 20110926, end: 20170622
  6. TAKEPRON [Concomitant]
     Active Substance: LANSOPRAZOLE
     Indication: GASTRIC MUCOSAL LESION
     Dosage: 15 MG, QAM
     Route: 065
     Dates: start: 20110818, end: 20170622
  7. MENESIT [Concomitant]
     Active Substance: CARBIDOPA\LEVODOPA
     Indication: PARKINSONISM
     Dosage: 100 MG, TID
     Route: 065
     Dates: start: 20070926, end: 20170622
  8. RIVOTRIL [Concomitant]
     Active Substance: CLONAZEPAM
     Indication: SEIZURE PROPHYLAXIS
     Dosage: 0.5 MG, QHS
     Route: 065
     Dates: start: 20120608, end: 20170622
  9. FERROMIA [Concomitant]
     Active Substance: SODIUM FERROUS CITRATE
     Indication: ANAEMIA
     Dosage: 50 MG, QPM
     Route: 065
     Dates: start: 20120312, end: 20170622

REACTIONS (5)
  - Pancreatic carcinoma [Fatal]
  - Hepatic cirrhosis [Unknown]
  - Nausea [Unknown]
  - Liver disorder [Unknown]
  - Off label use [Unknown]
